FAERS Safety Report 7054088-2 (Version None)
Quarter: 2010Q4

REPORT INFORMATION
  Report Type: 
  Country: None (occurrence: None)
  Receive Date: 20101020
  Receipt Date: 20101014
  Transmission Date: 20110411
  Serious: Yes (Hospitalization)
  Sender: FDA-Public Use
  Company Number: FR-KINGPHARMUSA00001-K201001271

PATIENT
  Age: 79 Year
  Sex: Male

DRUGS (15)
  1. ALTACE [Suspect]
     Indication: ESSENTIAL HYPERTENSION
     Dosage: 5 MG, QD
     Route: 048
     Dates: end: 20100714
  2. BISOPROLOL [Suspect]
     Indication: ESSENTIAL HYPERTENSION
     Dosage: 5 MG, QD
     Route: 048
     Dates: end: 20100714
  3. IMPUGAN [Suspect]
     Indication: ESSENTIAL HYPERTENSION
     Dosage: 40 MG, QD
     Route: 048
     Dates: end: 20100714
  4. OMEPRAZOLE [Concomitant]
  5. METFORMIN HCL [Concomitant]
  6. SIMVASTATIN [Concomitant]
  7. ACETAMINOPHEN [Concomitant]
     Dosage: 500 MG, UNK
  8. PRIMPERAN [Concomitant]
     Dosage: 10 MG, UNK
  9. LAXOBERAL [Concomitant]
     Dosage: 75 MG/ML SOLUTION DROPS, UNK
     Route: 048
  10. SUSCARD [Concomitant]
     Dosage: 5 MG, UNK
     Route: 002
  11. LAKTULOS [Concomitant]
     Dosage: 670 MG/ML, UNK
     Route: 048
  12. IMDUR [Concomitant]
     Dosage: 60 MG, UNK
  13. ASPIRIN [Concomitant]
     Dosage: 75 MG, UNK
  14. EFFEXOR [Concomitant]
     Dosage: 75 MG, UNK
  15. OXYCONTIN [Concomitant]
     Dosage: 10 MG, UNK

REACTIONS (4)
  - ORTHOSTATIC HYPOTENSION [None]
  - RENAL IMPAIRMENT [None]
  - SINUS BRADYCARDIA [None]
  - SYNCOPE [None]
